FAERS Safety Report 8425059-6 (Version None)
Quarter: 2012Q2

REPORT INFORMATION
  Report Type: 
  Country: None (occurrence: None)
  Receive Date: 20120605
  Receipt Date: 20120605
  Transmission Date: 20120825
  Serious: Yes (Life-Threatening, Hospitalization, Disabling, Other)
  Sender: FDA-Public Use
  Company Number: None

PATIENT
  Sex: Female
  Weight: 70.3075 kg

DRUGS (2)
  1. BONIVA [Suspect]
     Dosage: 1 PER MONTH BY MOUTH
     Route: 048
  2. FOSAMAX [Suspect]
     Dosage: 1 PER WEEK BY MOUTH
     Route: 048

REACTIONS (2)
  - STRESS FRACTURE [None]
  - FEMUR FRACTURE [None]
